FAERS Safety Report 11715020 (Version 1)
Quarter: 2015Q4

REPORT INFORMATION
  Report Type: Spontaneous
  Country: US (occurrence: None)
  Receive Date: 20151109
  Receipt Date: 20151109
  Transmission Date: 20160304
  Serious: No
  Sender: FDA-Public Use
  Company Number: ADR-2015-01615

PATIENT
  Age: 52 Year
  Sex: Female

DRUGS (2)
  1. BACLOFEN INTRATHECAL 75 MCG/ML [Suspect]
     Active Substance: BACLOFEN
     Indication: PAIN
     Dosage: 10.755MCG/DAY
  2. BUPIVACAINE (INTRATHECAL) 11.6 MG/ML [Suspect]
     Active Substance: BUPIVACAINE
     Indication: PAIN
     Dosage: 2.495MG/DAY

REACTIONS (2)
  - Muscle spasms [None]
  - Medical device site discomfort [None]
